FAERS Safety Report 5066983-4 (Version None)
Quarter: 2006Q3

REPORT INFORMATION
  Report Type: 
  Country: None (occurrence: None)
  Receive Date: 20060728
  Receipt Date: 20060721
  Transmission Date: 20061208
  Serious: Yes (Other)
  Sender: FDA-Public Use
  Company Number: USA-2006-0024692

PATIENT
  Sex: Male
  Weight: 113.4 kg

DRUGS (6)
  1. OXYCONTIN [Suspect]
     Indication: PAIN
     Dosage: ORAL
     Route: 048
     Dates: start: 19980101, end: 20060719
  2. NEURONTIN [Concomitant]
  3. NORCO [Concomitant]
  4. LORAZEPAM [Concomitant]
  5. HYZAAR [Concomitant]
  6. TOPROL-XL [Concomitant]

REACTIONS (12)
  - ACCIDENT [None]
  - BLOOD PRESSURE INCREASED [None]
  - DIARRHOEA [None]
  - DISEASE RECURRENCE [None]
  - DRUG WITHDRAWAL SYNDROME [None]
  - HEART RATE INCREASED [None]
  - HYPERHIDROSIS [None]
  - INAPPROPRIATE SCHEDULE OF DRUG ADMINISTRATION [None]
  - NAUSEA [None]
  - PAIN [None]
  - PANCREATITIS [None]
  - VOMITING [None]
